FAERS Safety Report 4829449-X (Version None)
Quarter: 2005Q4

REPORT INFORMATION
  Report Type: 
  Country: None (occurrence: None)
  Receive Date: 20051116
  Receipt Date: 20050908
  Transmission Date: 20060501
  Serious: Yes (Hospitalization, Disabling)
  Sender: FDA-Public Use
  Company Number: 200512031DE

PATIENT
  Age: 62 Year
  Sex: Male
  Weight: 79 kg

DRUGS (8)
  1. CODE UNBROKEN [Suspect]
  2. DOCETAXEL [Suspect]
     Indication: NON-SMALL CELL LUNG CANCER
     Route: 042
     Dates: start: 20050818, end: 20050818
  3. CARBOPLATIN [Suspect]
     Indication: NON-SMALL CELL LUNG CANCER
     Route: 042
     Dates: start: 20050818, end: 20050818
  4. AVELOX [Suspect]
     Indication: INFECTION
     Dates: start: 20050811
  5. FORTECORTIN [Concomitant]
     Indication: ANTIEMETIC SUPPORTIVE CARE
     Route: 042
     Dates: start: 20050818, end: 20050818
  6. FORTECORTIN [Concomitant]
     Route: 048
     Dates: start: 20050817, end: 20050819
  7. ZOFRAN [Concomitant]
     Indication: ANTIEMETIC SUPPORTIVE CARE
     Route: 042
     Dates: start: 20050818, end: 20050818
  8. ACC [Concomitant]
     Route: 048
     Dates: start: 20050811, end: 20050818

REACTIONS (3)
  - LEUKOCYTOCLASTIC VASCULITIS [None]
  - PNEUMONIA [None]
  - PYREXIA [None]
